FAERS Safety Report 25698137 (Version 2)
Quarter: 2025Q3

REPORT INFORMATION
  Report Type: Spontaneous
  Country: VN (occurrence: VN)
  Receive Date: 20250819
  Receipt Date: 20250901
  Transmission Date: 20251020
  Serious: Yes (Hospitalization, Other)
  Sender: AUROBINDO
  Company Number: VN-MLMSERVICE-20250725-PI590705-00052-1

PATIENT
  Age: 42 Year
  Sex: Male

DRUGS (6)
  1. AMOXICILLIN [Suspect]
     Active Substance: AMOXICILLIN
     Indication: Helicobacter infection
     Dosage: 1 GRAM, TWO TIMES A DAY
     Route: 048
     Dates: start: 20250409
  2. LEVOFLOXACIN [Suspect]
     Active Substance: LEVOFLOXACIN
     Indication: Helicobacter infection
     Dosage: 500 MILLIGRAM, ONCE A DAY
     Route: 048
     Dates: start: 20250409
  3. ESOMEPRAZOLE [Suspect]
     Active Substance: ESOMEPRAZOLE
     Indication: Helicobacter infection
     Dosage: 40 MILLIGRAM, TWO TIMES A DAY
     Route: 048
     Dates: start: 20250405
  4. BISMUTH [Suspect]
     Active Substance: BISMUTH SUBSALICYLATE
     Indication: Helicobacter infection
     Dosage: 2 DOSAGE FORM, TWO TIMES A DAY
     Route: 048
     Dates: start: 20250409
  5. PROBIOTICS NOS [Suspect]
     Active Substance: PROBIOTICS NOS
     Indication: Helicobacter infection
     Dosage: 2 DOSAGE FORM, ONCE A DAY
     Route: 048
     Dates: start: 20250409
  6. EBASTINE [Suspect]
     Active Substance: EBASTINE
     Indication: Helicobacter infection
     Dosage: 5 MILLIGRAM, ONCE A DAY
     Route: 048
     Dates: start: 20250409

REACTIONS (13)
  - Capillary leak syndrome [Recovered/Resolved]
  - Polyserositis [Recovered/Resolved]
  - Ascites [Recovered/Resolved]
  - Pericardial effusion [Recovered/Resolved]
  - Capillary permeability increased [Recovered/Resolved]
  - Hypersensitivity [Recovered/Resolved]
  - Hyponatraemia [Recovered/Resolved]
  - Hypoalbuminaemia [Recovered/Resolved]
  - Normochromic normocytic anaemia [Recovered/Resolved]
  - Lung infiltration [Recovered/Resolved]
  - Cardiomegaly [Recovered/Resolved]
  - Oedema peripheral [Recovered/Resolved]
  - Pleural effusion [Recovered/Resolved]
